FAERS Safety Report 14543000 (Version 1)
Quarter: 2018Q1

REPORT INFORMATION
  Report Type: Spontaneous
  Country: CA (occurrence: CA)
  Receive Date: 20180216
  Receipt Date: 20180216
  Transmission Date: 20180509
  Serious: Yes (Other)
  Sender: FDA-Public Use
  Company Number: CA-APTEVO BIOTHERAPEUTICS LLC-18WR00003SP

PATIENT
  Age: 18 Year
  Sex: Female

DRUGS (2)
  1. WINRHO SDF [Suspect]
     Active Substance: HUMAN RHO(D) IMMUNE GLOBULIN
     Indication: PROPHYLAXIS AGAINST RH ISOIMMUNISATION
     Dosage: 300 MCG, SINGLE
     Route: 042
     Dates: start: 20180121, end: 20180121
  2. ANTIBIOTICS [Concomitant]
     Active Substance: UNSPECIFIED INGREDIENT
     Indication: PRODUCT USED FOR UNKNOWN INDICATION

REACTIONS (3)
  - Pyelonephritis [Unknown]
  - Anaphylactic reaction [Recovered/Resolved]
  - Viraemia [Unknown]

NARRATIVE: CASE EVENT DATE: 20180121
